FAERS Safety Report 7762739-X (Version None)
Quarter: 2011Q3

REPORT INFORMATION
  Report Type: 
  Country: None (occurrence: None)
  Receive Date: 20110920
  Receipt Date: 20110915
  Transmission Date: 20111222
  Serious: Yes (Other)
  Sender: FDA-Public Use
  Company Number: BR-PFIZER INC-2011205222

PATIENT
  Age: 67 Year
  Sex: Female
  Weight: 47 kg

DRUGS (9)
  1. BONALEN [Concomitant]
     Indication: OSTEOPENIA
     Dosage: 70 MG, WEEKLY
     Dates: start: 20070101
  2. VARENICLINE TARTRATE [Suspect]
     Indication: SMOKING CESSATION THERAPY
     Dosage: UNK
     Route: 048
     Dates: start: 20110823, end: 20110801
  3. HIZAAR [Concomitant]
     Indication: HYPERTENSION
     Dosage: 100 MG, 1X/DAY
  4. FLUIR [Concomitant]
     Indication: RESPIRATORY DISORDER
     Dosage: UNKNOWN DOSE, ONCE DAILY
  5. CALCIUM [Concomitant]
     Indication: OSTEOPENIA
     Dosage: ONCE WEEKLY
     Dates: start: 20070101
  6. DILACORON [Concomitant]
     Indication: CARDIAC DISORDER
     Dosage: 240 MG, 1X/DAY
  7. VARENICLINE TARTRATE [Suspect]
     Dosage: 0.5 MG, 2X/DAY
     Route: 048
     Dates: start: 20110801
  8. VITAMIN D [Concomitant]
     Dosage: UNK
  9. LUFTAL [Concomitant]
     Dosage: 40 MG, 2X/DAY

REACTIONS (2)
  - VOMITING [None]
  - DEHYDRATION [None]
